FAERS Safety Report 5291354-5 (Version None)
Quarter: 2007Q2

REPORT INFORMATION
  Report Type: 
  Country: None (occurrence: None)
  Receive Date: 20070409
  Receipt Date: 20070402
  Transmission Date: 20071010
  Serious: Yes (Hospitalization, Other)
  Sender: FDA-Public Use
  Company Number: US-MERCK-0702USA01710

PATIENT
  Age: 49 Year
  Sex: Female
  Weight: 129 kg

DRUGS (20)
  1. JANUVIA [Suspect]
     Indication: DIABETES MELLITUS NON-INSULIN-DEPENDENT
     Route: 048
     Dates: start: 20070201, end: 20070212
  2. ACTOS [Concomitant]
     Route: 065
     Dates: end: 20070201
  3. DIOVAN [Concomitant]
     Route: 065
  4. LIPITOR [Concomitant]
     Route: 065
  5. CYANOCOBALAMIN [Concomitant]
     Route: 065
  6. XANAX [Concomitant]
     Route: 065
  7. EFFEXOR [Concomitant]
     Route: 065
  8. FOLIC ACID [Concomitant]
     Route: 065
  9. ACCOLATE [Concomitant]
     Route: 065
  10. IMDUR [Concomitant]
     Route: 065
  11. PREVACID [Concomitant]
     Route: 065
  12. ASMANEX TWISTHALER [Concomitant]
  13. ALUPENT [Concomitant]
  14. SPIRIVA [Concomitant]
     Route: 065
  15. ALBUTEROL [Concomitant]
  16. LORTAB [Concomitant]
     Indication: PAIN
     Route: 065
  17. MAXALT [Concomitant]
     Indication: MIGRAINE
     Route: 065
  18. ZANAFLEX [Concomitant]
     Route: 065
  19. BUMEX [Concomitant]
     Route: 065
  20. AMBIEN [Concomitant]
     Route: 065

REACTIONS (11)
  - BLOOD PRESSURE DECREASED [None]
  - DYSPNOEA [None]
  - ERYTHEMA [None]
  - ESCHAR [None]
  - FATIGUE [None]
  - GENERALISED OEDEMA [None]
  - MUSCULOSKELETAL CHEST PAIN [None]
  - POLLAKIURIA [None]
  - PRURITUS [None]
  - SKIN DISCOLOURATION [None]
  - SOMNOLENCE [None]
